FAERS Safety Report 16734393 (Version 1)
Quarter: 2019Q3

REPORT INFORMATION
  Report Type: Report from Study
  Country: US (occurrence: US)
  Receive Date: 20190823
  Receipt Date: 20190823
  Transmission Date: 20191005
  Serious: Yes (Hospitalization, Other)
  Sender: FDA-Public Use
  Company Number: US-BRISTOL-MYERS SQUIBB COMPANY-BMS-2019-080211

PATIENT
  Sex: Male

DRUGS (2)
  1. NIVOLUMAB [Suspect]
     Active Substance: NIVOLUMAB
     Indication: CHOLANGIOCARCINOMA
     Dosage: UNK, Q3WK
     Route: 042
     Dates: start: 201906
  2. YERVOY [Suspect]
     Active Substance: IPILIMUMAB
     Indication: CHOLANGIOCARCINOMA
     Dosage: UNK, Q3WK
     Route: 042
     Dates: start: 201906

REACTIONS (9)
  - Scab [Unknown]
  - Dehydration [Unknown]
  - Intentional product use issue [Unknown]
  - Fatigue [Unknown]
  - Ascites [Unknown]
  - Pruritus [Unknown]
  - Anxiety [Recovering/Resolving]
  - Abdominal pain [Unknown]
  - Blood pressure decreased [Unknown]
